FAERS Safety Report 6236000-9 (Version None)
Quarter: 2009Q2

REPORT INFORMATION
  Report Type: 
  Country: None (occurrence: None)
  Receive Date: 20090619
  Receipt Date: 20090608
  Transmission Date: 20091009
  Serious: Yes (Other)
  Sender: FDA-Public Use
  Company Number: US-BAYER-200923105NA

PATIENT

DRUGS (4)
  1. MAGNEVIST [Suspect]
     Indication: ARTHROSCOPY
     Dosage: AS USED: 1 ML
     Route: 014
  2. LIDOCAINE [Suspect]
     Indication: X-RAY
     Route: 014
  3. OPTIRAY 350 [Suspect]
     Indication: X-RAY
     Route: 014
  4. SODIUM CHLORIDE [Suspect]
     Indication: ARTHROSCOPY
     Dosage: AS USED: 9 ML
     Route: 014

REACTIONS (1)
  - NO ADVERSE EVENT [None]
